FAERS Safety Report 5872791-4 (Version None)
Quarter: 2008Q3

REPORT INFORMATION
  Report Type: 
  Country: None (occurrence: None)
  Receive Date: 20080905
  Receipt Date: 20080602
  Transmission Date: 20090109
  Serious: Yes (Hospitalization, Other)
  Sender: FDA-Public Use
  Company Number: US-PFIZER INC-2008047174

PATIENT
  Sex: Male

DRUGS (3)
  1. CHANTIX [Suspect]
     Indication: SMOKING CESSATION THERAPY
     Dates: start: 20071029, end: 20070101
  2. BLINDED VARENICLINE (CP-526,555) [Suspect]
     Indication: SMOKING CESSATION THERAPY
     Route: 030
     Dates: start: 20060727, end: 20070125
  3. PROZAC [Concomitant]

REACTIONS (5)
  - AGGRESSION [None]
  - ANGER [None]
  - DEPRESSION [None]
  - DEPRESSION SUICIDAL [None]
  - SUICIDAL IDEATION [None]
